FAERS Safety Report 16030603 (Version 1)
Quarter: 2019Q1

REPORT INFORMATION
  Report Type: Spontaneous
  Country: US (occurrence: US)
  Receive Date: 20190304
  Receipt Date: 20190304
  Transmission Date: 20190418
  Serious: No
  Sender: FDA-Public Use
  Company Number: US-PFIZER INC-2019089295

PATIENT
  Age: 7 Year
  Sex: Female

DRUGS (1)
  1. GENOTROPIN MQ [Suspect]
     Active Substance: SOMATROPIN
     Indication: SHORT-BOWEL SYNDROME
     Dosage: 0.2 MG, DAILY

REACTIONS (2)
  - Product use in unapproved indication [Unknown]
  - Vitamin D decreased [Unknown]
